FAERS Safety Report 8365717-5 (Version None)
Quarter: 2012Q2

REPORT INFORMATION
  Report Type: 
  Country: None (occurrence: None)
  Receive Date: 20120516
  Receipt Date: 20120507
  Transmission Date: 20120825
  Serious: Yes (Death, Hospitalization)
  Sender: FDA-Public Use
  Company Number: DE-BRISTOL-MYERS SQUIBB COMPANY-16572992

PATIENT
  Age: 70 Year
  Sex: Male
  Weight: 53 kg

DRUGS (4)
  1. CISPLATIN [Suspect]
     Indication: HEAD AND NECK CANCER
     Dates: start: 20120419
  2. FLUOROURACIL [Suspect]
     Indication: HEAD AND NECK CANCER
     Dates: start: 20120419
  3. DOCETAXEL [Suspect]
     Indication: HEAD AND NECK CANCER
     Dates: start: 20120419
  4. CETUXIMAB [Suspect]
     Indication: HEAD AND NECK CANCER
     Dates: start: 20120418

REACTIONS (1)
  - CONFUSIONAL STATE [None]
